FAERS Safety Report 6837538-3 (Version None)
Quarter: 2010Q3

REPORT INFORMATION
  Report Type: 
  Country: None (occurrence: None)
  Receive Date: 20100707
  Receipt Date: 20100629
  Transmission Date: 20110219
  Serious: Yes (Other)
  Sender: FDA-Public Use
  Company Number: 2010SP036433

PATIENT
  Age: 40 Year
  Sex: Male

DRUGS (1)
  1. AERIUS (DESLORATADINE /01398501/) (5 MG) [Suspect]
     Indication: HYPERSENSITIVITY
     Dosage: 10 MG;QD

REACTIONS (2)
  - CEREBROVASCULAR ACCIDENT [None]
  - HEADACHE [None]
